FAERS Safety Report 9703766 (Version 1)
Quarter: 2013Q4

REPORT INFORMATION
  Report Type: Spontaneous
  Country: ES (occurrence: ES)
  Receive Date: 20131122
  Receipt Date: 20131122
  Transmission Date: 20140711
  Serious: Yes (Other)
  Sender: FDA-Public Use
  Company Number: ES-JNJFOC-20131109057

PATIENT
  Sex: 0

DRUGS (1)
  1. TOPIRAMATE [Suspect]
     Indication: PRODUCT USED FOR UNKNOWN INDICATION
     Route: 048

REACTIONS (5)
  - Hypercalciuria [Unknown]
  - Hyperoxaluria [Unknown]
  - Hyperuricosuria [Unknown]
  - Hypocitraturia [Unknown]
  - Calculus urinary [Unknown]
